FAERS Safety Report 15479962 (Version 1)
Quarter: 2018Q4

REPORT INFORMATION
  Report Type: Spontaneous
  Country: DE (occurrence: DE)
  Receive Date: 20181009
  Receipt Date: 20181009
  Transmission Date: 20190205
  Serious: Yes (Other)
  Sender: FDA-Public Use
  Company Number: DE-GUERBET-DE-20180102

PATIENT
  Age: 50 Year
  Sex: Female
  Weight: 57 kg

DRUGS (3)
  1. DOTAREM [Suspect]
     Active Substance: GADOTERATE MEGLUMINE
     Indication: NUCLEAR MAGNETIC RESONANCE IMAGING
     Route: 042
     Dates: start: 20180320, end: 20180320
  2. DOTAREM [Suspect]
     Active Substance: GADOTERATE MEGLUMINE
     Indication: NUCLEAR MAGNETIC RESONANCE IMAGING
     Route: 042
     Dates: start: 20170831, end: 20170831
  3. CLARISCAN [Suspect]
     Active Substance: GADOTERATE MEGLUMINE
     Indication: NUCLEAR MAGNETIC RESONANCE IMAGING
     Route: 042

REACTIONS (25)
  - Joint stiffness [Unknown]
  - Myosclerosis [Unknown]
  - Skin tightness [Unknown]
  - Temperature intolerance [Unknown]
  - Dry eye [Unknown]
  - Skin induration [Unknown]
  - Body temperature decreased [Unknown]
  - Piloerection [Unknown]
  - Pruritus [Unknown]
  - Skin atrophy [Unknown]
  - Joint noise [Unknown]
  - Muscle contracture [Unknown]
  - Gadolinium deposition disease [Unknown]
  - Eye irritation [Unknown]
  - Aphasia [Unknown]
  - Disturbance in attention [Unknown]
  - Sleep disorder [Unknown]
  - Dizziness [Unknown]
  - Bone pain [Unknown]
  - Memory impairment [Unknown]
  - Myalgia [Unknown]
  - Skin hypertrophy [Unknown]
  - Muscle twitching [Unknown]
  - Arthralgia [Unknown]
  - Musculoskeletal discomfort [Unknown]

NARRATIVE: CASE EVENT DATE: 20180321
